FAERS Safety Report 25094896 (Version 1)
Quarter: 2025Q1

REPORT INFORMATION
  Report Type: Spontaneous
  Country: US (occurrence: None)
  Receive Date: 20250319
  Receipt Date: 20250319
  Transmission Date: 20250409
  Serious: No
  Sender: FDA-CTU
  Company Number: None

PATIENT
  Age: 64 Year
  Sex: Female

DRUGS (1)
  1. XELJANZ XR [Suspect]
     Active Substance: TOFACITINIB CITRATE
     Indication: Ankylosing spondylitis
     Dosage: OTHER QUANTITY : 1DOSE;?FREQUENCY : DAILY;?
     Route: 048
     Dates: start: 202307

REACTIONS (2)
  - Ear infection [None]
  - Sinusitis [None]
